FAERS Safety Report 13325885 (Version 5)
Quarter: 2017Q2

REPORT INFORMATION
  Report Type: Report from Study
  Country: None (occurrence: US)
  Receive Date: 20170310
  Receipt Date: 20170410
  Transmission Date: 20170830
  Serious: Yes (Hospitalization)
  Sender: FDA-Public Use
  Company Number: US-ABBVIE-17P-163-1902248-00

PATIENT
  Sex: Male

DRUGS (4)
  1. VENCLEXTA [Suspect]
     Active Substance: VENETOCLAX
     Route: 048
     Dates: start: 20170306
  2. VENCLEXTA [Suspect]
     Active Substance: VENETOCLAX
     Route: 048
     Dates: start: 201703
  3. VENCLEXTA [Suspect]
     Active Substance: VENETOCLAX
     Route: 048
     Dates: start: 20170227, end: 20170305
  4. VENCLEXTA [Suspect]
     Active Substance: VENETOCLAX
     Indication: CHRONIC LYMPHOCYTIC LEUKAEMIA
     Route: 048
     Dates: start: 20170220, end: 20170226

REACTIONS (13)
  - Oesophageal oedema [Recovered/Resolved]
  - Aphasia [Recovered/Resolved]
  - White blood cell count increased [Recovered/Resolved]
  - Erythema [Not Recovered/Not Resolved]
  - Wound [Not Recovered/Not Resolved]
  - Speech disorder [Recovered/Resolved]
  - Localised infection [Not Recovered/Not Resolved]
  - Oesophageal infection [Recovered/Resolved]
  - Tumour lysis syndrome [Recovered/Resolved]
  - Fatigue [Not Recovered/Not Resolved]
  - Pneumonia [Recovered/Resolved]
  - Malaise [Not Recovered/Not Resolved]
  - Fluid retention [Not Recovered/Not Resolved]
